FAERS Safety Report 5002589-0 (Version None)
Quarter: 2006Q2

REPORT INFORMATION
  Report Type: 
  Country: None (occurrence: None)
  Receive Date: 20060515
  Receipt Date: 20051117
  Transmission Date: 20061013
  Serious: Yes (Hospitalization)
  Sender: FDA-Public Use
  Company Number: US-MERCK-0511USA03259

PATIENT
  Age: 47 Year
  Sex: Male
  Weight: 105 kg

DRUGS (6)
  1. VIOXX [Suspect]
     Indication: BACK PAIN
     Route: 048
     Dates: start: 20030801, end: 20040101
  2. VIOXX [Suspect]
     Indication: GOUT
     Route: 048
     Dates: start: 20030801, end: 20040101
  3. MECLIZINE [Concomitant]
     Route: 065
  4. GEMFIBROZIL [Concomitant]
     Route: 065
  5. TRAMADOL HYDROCHLORIDE [Concomitant]
     Route: 065
  6. ZYRTEC-D 12 HOUR [Concomitant]
     Route: 065

REACTIONS (1)
  - MYOCARDIAL INFARCTION [None]
